FAERS Safety Report 4894448-9 (Version None)
Quarter: 2006Q1

REPORT INFORMATION
  Report Type: 
  Country: None (occurrence: None)
  Receive Date: 20060127
  Receipt Date: 20051121
  Transmission Date: 20060701
  Serious: Yes (Hospitalization)
  Sender: FDA-Public Use
  Company Number: NL-ROCHE-425551

PATIENT
  Age: 57 Year
  Sex: Female

DRUGS (10)
  1. CAPECITABINE [Suspect]
     Indication: COLON CANCER
     Dosage: ACTUAL DOSE= 4000 MG DAILY.  GIVEN ON DAYS ONE TO FOURTEEN OF A THREE WEEK CYCLE.
     Route: 048
     Dates: start: 20051014
  2. CAPECITABINE [Suspect]
     Route: 048
     Dates: end: 20060104
  3. BEVACIZUMAB [Suspect]
     Indication: COLON CANCER
     Dosage: ACTUAL DOSE: 592 MG GIVEN ON DAY ONE OF A THREE WEEK CYCLE.
     Route: 042
     Dates: start: 20051014
  4. OXALIPLATIN [Suspect]
     Indication: COLON CANCER
     Dosage: ACTUAL DOSE: 248 MG GIVEN ON DAY ONE OF THE THREE WEEK CYCLE.
     Route: 042
     Dates: start: 20051014
  5. METOCLOPRAMIDE [Concomitant]
  6. THYROX [Concomitant]
  7. LACTULOSE [Concomitant]
  8. TRAMADOL HCL [Concomitant]
  9. THYRAX [Concomitant]
  10. CIPROXIN [Concomitant]

REACTIONS (5)
  - DIARRHOEA [None]
  - HYDRONEPHROSIS [None]
  - INFECTION [None]
  - PYREXIA [None]
  - RENAL FAILURE [None]
